FAERS Safety Report 15298655 (Version 1)
Quarter: 2018Q3

REPORT INFORMATION
  Report Type: Report from Study
  Country: JP (occurrence: JP)
  Receive Date: 20180820
  Receipt Date: 20180820
  Transmission Date: 20181010
  Serious: Yes (Life-Threatening)
  Sender: FDA-Public Use
  Company Number: JP-MUNDIPHARMA DS AND PHARMACOVIGILANCE-GBR-2015-0026537

PATIENT
  Age: 71 Year
  Sex: Male

DRUGS (15)
  1. FLUMETHOLON [Concomitant]
     Active Substance: FLUOROMETHOLONE
     Route: 065
  2. BAYASPIRIN [Concomitant]
     Active Substance: ASPIRIN
     Route: 065
  3. VITAMEDIN                          /00274301/ [Concomitant]
     Active Substance: BENFOTIAMINE\CYANOCOBALAMIN\PYRIDOXINE HYDROCHLORIDE
     Route: 065
  4. FRANDOL S [Concomitant]
     Active Substance: ISOSORBIDE DINITRATE
     Route: 065
  5. RANITIDINE. [Concomitant]
     Active Substance: RANITIDINE
     Route: 065
  6. HUMULIN R [Concomitant]
     Active Substance: INSULIN HUMAN
     Route: 065
  7. MOBIC [Concomitant]
     Active Substance: MELOXICAM
     Route: 065
  8. SARPOGRELATE HYDROCHLORIDE [Concomitant]
     Active Substance: SARPOGRELATE HYDROCHLORIDE
     Route: 065
  9. MAGMITT [Concomitant]
     Active Substance: MAGNESIUM OXIDE
     Route: 065
  10. RABEPRAZOLE [Concomitant]
     Active Substance: RABEPRAZOLE
     Route: 065
  11. DICLOD [Concomitant]
     Active Substance: DICLOFENAC SODIUM
     Route: 065
  12. OXYCODONE HCL IR POWDER 0.5% [Suspect]
     Active Substance: OXYCODONE HYDROCHLORIDE
     Indication: CANCER PAIN
     Dosage: 2.5 MG, QID
     Route: 048
     Dates: start: 20140513, end: 20140516
  13. UNASYN S [Concomitant]
     Active Substance: AMPICILLIN SODIUM\SULBACTAM SODIUM
     Route: 065
  14. CRAVIT [Concomitant]
     Active Substance: LEVOFLOXACIN
     Route: 065
  15. NOVAMIN                            /00013301/ [Concomitant]
     Active Substance: PROCHLORPERAZINE
     Route: 065

REACTIONS (1)
  - Pneumonia aspiration [Recovering/Resolving]

NARRATIVE: CASE EVENT DATE: 20140516
